FAERS Safety Report 4902340-6 (Version None)
Quarter: 2006Q1

REPORT INFORMATION
  Report Type: 
  Country: None (occurrence: None)
  Receive Date: 20060202
  Receipt Date: 20060124
  Transmission Date: 20060701
  Serious: Yes (Other)
  Sender: FDA-Public Use
  Company Number: 2005-08-1175

PATIENT
  Age: 36 Year
  Sex: Female

DRUGS (2)
  1. CLARITIN [Suspect]
     Indication: SEASONAL ALLERGY
     Dosage: 10 MG QD ORAL
     Route: 048
     Dates: start: 20050418, end: 20050429
  2. BUDESONIDE [Concomitant]

REACTIONS (5)
  - BRAIN MALFORMATION [None]
  - DRUG EXPOSURE DURING PREGNANCY [None]
  - FOETAL DISORDER [None]
  - PREGNANCY [None]
  - ULTRASOUND SKULL ABNORMAL [None]
